FAERS Safety Report 4495929-2 (Version None)
Quarter: 2004Q3

REPORT INFORMATION
  Report Type: 
  Country: None (occurrence: None)
  Receive Date: 20040927
  Receipt Date: 20040517
  Transmission Date: 20050211
  Serious: No
  Sender: FDA-Public Use
  Company Number: USA040568124

PATIENT
  Age: 8 Year
  Sex: Male

DRUGS (1)
  1. STRATTERA [Suspect]

REACTIONS (2)
  - PHOTOPHOBIA [None]
  - PHOTOPSIA [None]
